FAERS Safety Report 7344281-3 (Version None)
Quarter: 2011Q1

REPORT INFORMATION
  Report Type: 
  Country: None (occurrence: None)
  Receive Date: 20110310
  Receipt Date: 20101012
  Transmission Date: 20110831
  Serious: No
  Sender: FDA-Public Use
  Company Number: A0886047A

PATIENT
  Age: 62 Year
  Sex: Male

DRUGS (2)
  1. NICORETTE [Suspect]
  2. NICORETTE [Suspect]

REACTIONS (9)
  - INTENTIONAL DRUG MISUSE [None]
  - ORAL PAIN [None]
  - NICOTINE DEPENDENCE [None]
  - LIP SWELLING [None]
  - CHEILITIS [None]
  - STOMATITIS [None]
  - ORAL MUCOSAL ERYTHEMA [None]
  - DRUG ADMINISTRATION ERROR [None]
  - OEDEMA MOUTH [None]
